FAERS Safety Report 19626839 (Version 1)
Quarter: 2021Q3

REPORT INFORMATION
  Report Type: Spontaneous
  Country: US (occurrence: US)
  Receive Date: 20210729
  Receipt Date: 20210729
  Transmission Date: 20211014
  Serious: No
  Sender: FDA-Public Use
  Company Number: US-BAYER-2021-184267

PATIENT

DRUGS (1)
  1. MIRALAX [Suspect]
     Active Substance: POLYETHYLENE GLYCOL 3350
     Indication: GASTROINTESTINAL DISORDER
     Dosage: 17G MIXED WITH 4?8OZ OF BEVERAGE DAILY
     Route: 048

REACTIONS (2)
  - Abdominal distension [Unknown]
  - Gastrooesophageal reflux disease [Unknown]
